FAERS Safety Report 11984738 (Version 1)
Quarter: 2016Q1

REPORT INFORMATION
  Report Type: Spontaneous
  Country: NO (occurrence: NO)
  Receive Date: 20160201
  Receipt Date: 20160201
  Transmission Date: 20160526
  Serious: Yes (Other)
  Sender: FDA-Public Use
  Company Number: NO-GE HEALTHCARE MEDICAL DIAGNOSTICS-YSIL-PR-1601S-0001

PATIENT
  Sex: Male

DRUGS (2)
  1. (Y-90) YTTRIUM SILICATE [Suspect]
     Active Substance: YTTRIUM SILICATE COLLOIDAL, Y-90
     Indication: CRANIOPHARYNGIOMA
     Dates: start: 20000504, end: 20000504
  2. (Y-90) YTTRIUM SILICATE [Suspect]
     Active Substance: YTTRIUM SILICATE COLLOIDAL, Y-90
     Indication: THERAPEUTIC PROCEDURE

REACTIONS (3)
  - Blindness [Unknown]
  - Accidental overdose [Unknown]
  - Off label use [Unknown]

NARRATIVE: CASE EVENT DATE: 20000504
